FAERS Safety Report 7452331-9 (Version None)
Quarter: 2011Q2

REPORT INFORMATION
  Report Type: 
  Country: None (occurrence: None)
  Receive Date: 20110502
  Receipt Date: 20110407
  Transmission Date: 20111010
  Serious: Yes (Other)
  Sender: FDA-Public Use
  Company Number: US-BAYER-200934231NA

PATIENT
  Age: 59 Year
  Sex: Male
  Weight: 75.737 kg

DRUGS (28)
  1. LOSARTAN POTASSIUM [Concomitant]
  2. TRASYLOL [Suspect]
     Indication: AORTIC ANEURYSM REPAIR
     Dosage: 50 MG, Q1HR
     Route: 042
     Dates: start: 19940405
  3. AMIDATE [Concomitant]
     Dosage: 20 MG, UNK
     Dates: start: 19940405, end: 19940405
  4. PAVULON [Concomitant]
     Dosage: 10 MG, UNK
     Route: 042
     Dates: start: 19940405, end: 19940405
  5. VERSED [Concomitant]
     Dosage: 10 MG, UNK
     Route: 042
     Dates: start: 19940405, end: 19940405
  6. ROCURONIUM [Concomitant]
     Dosage: UNK
     Dates: start: 20020509, end: 20020509
  7. TRASYLOL [Suspect]
     Indication: AORTIC VALVE REPLACEMENT
     Dosage: 200 ML, UNK
     Route: 042
     Dates: start: 20020509, end: 20020509
  8. ANCEF [Concomitant]
     Dosage: 2 G, UNK
     Route: 042
     Dates: start: 19940405, end: 19940405
  9. PROTAMINE SULFATE [Concomitant]
     Dosage: 330 MG, UNK
     Route: 042
  10. LASIX [Concomitant]
     Dosage: 40 MG, UNK
     Route: 042
     Dates: start: 20020509, end: 20020509
  11. TRASYLOL [Suspect]
     Dosage: 50 ML, Q1HR
     Route: 042
     Dates: start: 20020509, end: 20020509
  12. LABETALOL [Concomitant]
  13. PROTAMINE SULFATE [Concomitant]
     Dosage: 300 ML, UNK
     Route: 042
     Dates: start: 20020509, end: 20020509
  14. DILAUDID [Concomitant]
  15. NITROGLYCERIN [Concomitant]
     Dosage: UNK
     Route: 042
     Dates: start: 19940405, end: 19940405
  16. NITROGLYCERIN [Concomitant]
     Dosage: UNK
     Dates: start: 20020509, end: 20020509
  17. PLASMA [Concomitant]
     Dosage: UNK
     Dates: start: 20020509, end: 20020509
  18. DEXAMETHASONE [Concomitant]
  19. HEPARIN [Concomitant]
     Dosage: 25000 U, UNK
     Route: 042
     Dates: start: 19940405, end: 19940405
  20. MIDAZOLAM [Concomitant]
     Dosage: UNK
     Dates: start: 20020509, end: 20020509
  21. SODIUM NITROPRUSSIDE [Concomitant]
     Dosage: UNK
     Dates: start: 20020509, end: 20020509
  22. CEFAZOLIN [Concomitant]
     Dosage: 1 G, UNK
     Route: 042
     Dates: start: 20020509, end: 20020509
  23. ETOMIDATE [Concomitant]
     Dosage: 20 MG, UNK
     Route: 042
     Dates: start: 20020509, end: 20020509
  24. HEPARIN [Concomitant]
     Dosage: 5000 U, UNK
     Route: 042
     Dates: start: 20020509, end: 20020509
  25. ALLOPURINOL [Concomitant]
  26. ANECTINE [Concomitant]
     Dosage: 3 MG/160 MG, UNK
     Dates: start: 19940405, end: 19940405
  27. PLATELETS [Concomitant]
     Dosage: UNK
     Dates: start: 20020502, end: 20020502
  28. RED BLOOD CELLS [Concomitant]
     Dosage: UNK
     Dates: start: 20020509, end: 20020509

REACTIONS (13)
  - RENAL INJURY [None]
  - EMOTIONAL DISTRESS [None]
  - FEAR OF DEATH [None]
  - ANXIETY [None]
  - FEAR [None]
  - NERVOUSNESS [None]
  - MULTI-ORGAN FAILURE [None]
  - INJURY [None]
  - UNEVALUABLE EVENT [None]
  - RENAL FAILURE [None]
  - PAIN [None]
  - DEPRESSION [None]
  - ANHEDONIA [None]
